FAERS Safety Report 14333725 (Version 6)
Quarter: 2020Q3

REPORT INFORMATION
  Report Type: Report from Study
  Country: GB (occurrence: GB)
  Receive Date: 20171228
  Receipt Date: 20200713
  Transmission Date: 20201102
  Serious: Yes (Other)
  Sender: FDA-Public Use
  Company Number: GB-PFIZER INC-2017548028

PATIENT
  Age: 54 Year
  Sex: Female

DRUGS (3)
  1. METHYLPREDNISOLONE. [Suspect]
     Active Substance: METHYLPREDNISOLONE
     Indication: HYPOAESTHESIA
  2. GILENYA [Suspect]
     Active Substance: FINGOLIMOD HYDROCHLORIDE
     Indication: MULTIPLE SCLEROSIS
     Dosage: UNK, 1X/DAY
     Route: 048
     Dates: start: 20140925, end: 201412
  3. METHYLPREDNISOLONE. [Suspect]
     Active Substance: METHYLPREDNISOLONE
     Indication: MULTIPLE SCLEROSIS RELAPSE
     Dosage: UNK
     Dates: start: 20150311, end: 20150313

REACTIONS (12)
  - Limb discomfort [Recovered/Resolved]
  - Drug hypersensitivity [Unknown]
  - Choking [Not Recovered/Not Resolved]
  - Hepatic function abnormal [Recovered/Resolved]
  - Fall [Not Recovered/Not Resolved]
  - Balance disorder [Not Recovered/Not Resolved]
  - Coordination abnormal [Not Recovered/Not Resolved]
  - Urinary tract infection [Unknown]
  - Micturition urgency [Not Recovered/Not Resolved]
  - Arthralgia [Not Recovered/Not Resolved]
  - Mobility decreased [Not Recovered/Not Resolved]
  - Hypoaesthesia [Unknown]

NARRATIVE: CASE EVENT DATE: 20150311
